FAERS Safety Report 21332120 (Version 1)
Quarter: 2022Q3

REPORT INFORMATION
  Report Type: Spontaneous
  Country: DE (occurrence: None)
  Receive Date: 20220914
  Receipt Date: 20220914
  Transmission Date: 20221026
  Serious: Yes (Hospitalization)
  Sender: FDA-Public Use
  Company Number: 2022A313417

PATIENT
  Age: 82 Year
  Weight: 107 kg

DRUGS (9)
  1. DAPAGLIFLOZIN [Suspect]
     Active Substance: DAPAGLIFLOZIN
     Indication: Diabetes mellitus
     Route: 048
  2. BISOPROLOL [Concomitant]
     Active Substance: BISOPROLOL
     Route: 065
  3. DAPAGLIFLOZIN [Concomitant]
     Active Substance: DAPAGLIFLOZIN
     Dosage: 5.0MG UNKNOWN
     Route: 065
  4. ENTRESTO [Concomitant]
     Active Substance: SACUBITRIL\VALSARTAN
     Dosage: ENTRESTO 2 X 24/26 MG
     Route: 065
  5. FUROSEMIDE IV [Concomitant]
     Route: 065
  6. RAMIPRIL [Concomitant]
     Active Substance: RAMIPRIL
     Route: 065
  7. SPIRONOLACTONE [Concomitant]
     Active Substance: SPIRONOLACTONE
     Route: 065
  8. SPIRONOLACTONE [Concomitant]
     Active Substance: SPIRONOLACTONE
     Dosage: SPIRONOLACTONE 25MG25.0MG UNKNOWN
     Route: 065
  9. TORSEMIDE [Concomitant]
     Active Substance: TORSEMIDE
     Dosage: TORASEMIDE 5MG -10MG ACCORDING TO WEIGHT
     Route: 065

REACTIONS (5)
  - Pleural effusion [Unknown]
  - Oedema peripheral [Unknown]
  - Dyspnoea [Unknown]
  - Pulmonary congestion [Unknown]
  - Off label use [Unknown]
